FAERS Safety Report 12721506 (Version 1)
Quarter: 2016Q3

REPORT INFORMATION
  Report Type: Spontaneous
  Country: IL (occurrence: IL)
  Receive Date: 20160907
  Receipt Date: 20160907
  Transmission Date: 20161109
  Serious: Yes (Hospitalization)
  Sender: FDA-Public Use
  Company Number: IL-ASTRAZENECA-2016SE93686

PATIENT
  Age: 91 Year
  Sex: Male

DRUGS (10)
  1. OMEPRAZOL [Concomitant]
     Active Substance: OMEPRAZOLE
  2. LIPITOR [Concomitant]
     Active Substance: ATORVASTATIN CALCIUM
  3. ALFUZOSIN [Concomitant]
     Active Substance: ALFUZOSIN
  4. RAMIPRIL. [Concomitant]
     Active Substance: RAMIPRIL
  5. ASPIRIN. [Concomitant]
     Active Substance: ASPIRIN
  6. CARDILOC [Concomitant]
     Active Substance: BISOPROLOL FUMARATE
  7. SPIRANOLACTONE [Concomitant]
  8. BRILINTA [Suspect]
     Active Substance: TICAGRELOR
     Indication: ACUTE MYOCARDIAL INFARCTION
     Route: 048
  9. FUSID [Concomitant]
     Active Substance: FUROSEMIDE
  10. SPASMEX [Concomitant]
     Active Substance: TROSPIUM CHLORIDE

REACTIONS (1)
  - Vomiting [Recovered/Resolved]
